FAERS Safety Report 25003793 (Version 3)
Quarter: 2025Q2

REPORT INFORMATION
  Report Type: Spontaneous
  Country: US (occurrence: US)
  Receive Date: 20250224
  Receipt Date: 20250628
  Transmission Date: 20250716
  Serious: No
  Sender: SANOFI AVENTIS
  Company Number: US-SA-2025SA005440

PATIENT
  Age: 61 Year
  Sex: Female
  Weight: 48.18 kg

DRUGS (11)
  1. KEVZARA [Suspect]
     Active Substance: SARILUMAB
     Indication: Polymyalgia rheumatica
     Dosage: 200 MG, QOW
     Route: 058
     Dates: start: 20241224
  2. KEVZARA [Suspect]
     Active Substance: SARILUMAB
     Indication: Osteoporosis
  3. KEVZARA [Suspect]
     Active Substance: SARILUMAB
     Indication: Joint prosthesis user
  4. KEVZARA [Suspect]
     Active Substance: SARILUMAB
     Indication: Rheumatoid arthritis
  5. PREDNISONE [Concomitant]
     Active Substance: PREDNISONE
  6. TYLENOL EXTRA STRENGTH [Concomitant]
     Active Substance: ACETAMINOPHEN
  7. UBRELVY [Concomitant]
     Active Substance: UBROGEPANT
  8. PROTONIX [Concomitant]
     Active Substance: PANTOPRAZOLE SODIUM
  9. PROBIOTIC 10 BILLION DAILY MAINTENANCE [Concomitant]
  10. TYLENOL ARTHRITIS PAIN [Concomitant]
     Active Substance: ACETAMINOPHEN
  11. FOLIC ACID [Concomitant]
     Active Substance: FOLIC ACID

REACTIONS (9)
  - Neck pain [Not Recovered/Not Resolved]
  - Arthralgia [Recovering/Resolving]
  - Sinus disorder [Not Recovered/Not Resolved]
  - Blood cholesterol increased [Not Recovered/Not Resolved]
  - Aphthous ulcer [Recovering/Resolving]
  - Stomatitis [Not Recovered/Not Resolved]
  - Carpal tunnel decompression [Not Recovered/Not Resolved]
  - Drug effect less than expected [Unknown]
  - Product use in unapproved indication [Unknown]

NARRATIVE: CASE EVENT DATE: 20241224
